FAERS Safety Report 7361155-2 (Version None)
Quarter: 2011Q1

REPORT INFORMATION
  Report Type: 
  Country: None (occurrence: None)
  Receive Date: 20110318
  Receipt Date: 20110309
  Transmission Date: 20110831
  Serious: Yes (Hospitalization)
  Sender: FDA-Public Use
  Company Number: JP-ROCHE-765780

PATIENT
  Age: 58 Year
  Sex: Male

DRUGS (1)
  1. ACTEMRA [Suspect]
     Indication: RHEUMATOID ARTHRITIS
     Dosage: UNCERTAIN DOSAGE AND FOUR TIME ADMINISTERING
     Route: 041
     Dates: start: 20100401

REACTIONS (2)
  - TRAUMATIC HAEMATOMA [None]
  - STAPHYLOCOCCAL INFECTION [None]
